FAERS Safety Report 17398174 (Version 2)
Quarter: 2020Q1

REPORT INFORMATION
  Report Type: Spontaneous
  Country: US (occurrence: US)
  Receive Date: 20200210
  Receipt Date: 20200309
  Transmission Date: 20200409
  Serious: Yes (Other)
  Sender: FDA-Public Use
  Company Number: US-PFIZER INC-2019223190

PATIENT
  Age: 75 Year
  Sex: Female
  Weight: 80.74 kg

DRUGS (1)
  1. PREMARIN [Suspect]
     Active Substance: ESTROGENS, CONJUGATED
     Indication: SKIN ODOUR ABNORMAL
     Dosage: UNK
     Dates: start: 201906, end: 201906

REACTIONS (3)
  - Drug ineffective for unapproved indication [Unknown]
  - Cataract [Unknown]
  - Off label use [Unknown]

NARRATIVE: CASE EVENT DATE: 201906
